FAERS Safety Report 7906383-X (Version None)
Quarter: 2011Q4

REPORT INFORMATION
  Report Type: 
  Country: None (occurrence: None)
  Receive Date: 20111110
  Receipt Date: 20111103
  Transmission Date: 20120403
  Serious: Yes (Death, Hospitalization, Other)
  Sender: FDA-Public Use
  Company Number: ES-CELGENEUS-144-21880-11110268

PATIENT

DRUGS (1)
  1. REVLIMID [Suspect]
     Indication: MULTIPLE MYELOMA
     Route: 048

REACTIONS (8)
  - RASH [None]
  - DEEP VEIN THROMBOSIS [None]
  - ACUTE MYELOID LEUKAEMIA [None]
  - NEUTROPENIA [None]
  - DEATH [None]
  - INTERSTITIAL LUNG DISEASE [None]
  - GENERAL PHYSICAL HEALTH DETERIORATION [None]
  - ASTHENIA [None]
